FAERS Safety Report 5703787-0 (Version None)
Quarter: 2008Q2

REPORT INFORMATION
  Report Type: 
  Country: None (occurrence: None)
  Receive Date: 20080414
  Receipt Date: 20080409
  Transmission Date: 20081010
  Serious: Yes (Hospitalization, Other)
  Sender: FDA-Public Use
  Company Number: US-BAYER-200715454NA

PATIENT
  Age: 60 Year
  Sex: Female

DRUGS (3)
  1. BETASERON [Suspect]
     Indication: MULTIPLE SCLEROSIS
     Dosage: TOTAL DAILY DOSE: 8 MIU
     Route: 058
     Dates: start: 20030720, end: 20050103
  2. BETASERON [Suspect]
     Dosage: TOTAL DAILY DOSE: 8 MIU
     Route: 058
     Dates: start: 20050128, end: 20051215
  3. BETASERON [Suspect]
     Dosage: TOTAL DAILY DOSE: 8 MIU
     Route: 058
     Dates: start: 20060830

REACTIONS (5)
  - CARDIAC FAILURE CONGESTIVE [None]
  - OEDEMA PERIPHERAL [None]
  - SHOCK [None]
  - STAPHYLOCOCCAL INFECTION [None]
  - WEIGHT INCREASED [None]
